FAERS Safety Report 4366404-0 (Version None)
Quarter: 2004Q2

REPORT INFORMATION
  Report Type: 
  Country: None (occurrence: None)
  Receive Date: 20040524
  Receipt Date: 20040510
  Transmission Date: 20050107
  Serious: Yes (Hospitalization)
  Sender: FDA-Public Use
  Company Number: AU-JNJFOC-20040503168

PATIENT
  Age: 42 Year
  Sex: Male

DRUGS (2)
  1. TRAMAL (TRAMADOL HYDROCHLORIDE) [Suspect]
     Indication: PAIN
     Dosage: 100 MG, 2 IN 1 DAY, INTRA-MUSCULAR
     Route: 030
     Dates: start: 20040219, end: 20040219
  2. KAPANOL (MORPHINE SULFATE) [Concomitant]

REACTIONS (1)
  - PAIN EXACERBATED [None]
